FAERS Safety Report 16730089 (Version 1)
Quarter: 2019Q3

REPORT INFORMATION
  Report Type: Spontaneous
  Country: US (occurrence: US)
  Receive Date: 20190822
  Receipt Date: 20190822
  Transmission Date: 20191005
  Serious: No
  Sender: FDA-Public Use
  Company Number: US-PACIRA-201400202

PATIENT
  Age: 53 Year
  Sex: Male
  Weight: 77 kg

DRUGS (1)
  1. EXPAREL [Suspect]
     Active Substance: BUPIVACAINE
     Indication: POSTOPERATIVE ANALGESIA
     Dosage: DILUTED 60CC; INJECTION INTO SOFT TISSUES, FREQUENCY UNK
     Route: 065

REACTIONS (2)
  - Peroneal nerve palsy [Recovered/Resolved]
  - Paraesthesia [Recovered/Resolved]
